FAERS Safety Report 18051929 (Version 4)
Quarter: 2020Q3

REPORT INFORMATION
  Report Type: Spontaneous
  Country: CA (occurrence: CA)
  Receive Date: 20200722
  Receipt Date: 20200908
  Transmission Date: 20201103
  Serious: Yes (Other)
  Sender: FDA-Public Use
  Company Number: CA-AKCEA THERAPEUTICS-2020IS001164

PATIENT
  Age: 59 Year
  Sex: Female
  Weight: 35.86 kg

DRUGS (11)
  1. VAGISIL ANTI ITCH ORIGINAL STRENGTH [Concomitant]
     Active Substance: BENZOCAINE\RESORCINOL
     Route: 061
  2. VENIXXA [Concomitant]
     Route: 065
  3. ISSD (INTEGRATED SYRINGE SAFETY DEVICE) [Suspect]
     Active Substance: DEVICE
  4. TEGSEDI [Suspect]
     Active Substance: INOTERSEN SODIUM
     Route: 058
     Dates: start: 2020
  5. TEGSEDI [Suspect]
     Active Substance: INOTERSEN SODIUM
     Route: 058
  6. TEGSEDI [Suspect]
     Active Substance: INOTERSEN SODIUM
     Indication: HEREDITARY NEUROPATHIC AMYLOIDOSIS
     Route: 058
     Dates: start: 20200421
  7. MIDODRINE [Concomitant]
     Active Substance: MIDODRINE
     Route: 048
     Dates: start: 2020
  8. TEGSEDI [Suspect]
     Active Substance: INOTERSEN SODIUM
     Route: 058
  9. ASCORBIC ACID W/VITAMIN D NOS [Concomitant]
     Route: 048
  10. MIDODRINE [Concomitant]
     Active Substance: MIDODRINE
     Route: 048
     Dates: start: 202003
  11. CLARITIN [Concomitant]
     Active Substance: LORATADINE
     Route: 048

REACTIONS (27)
  - Feeling abnormal [Recovering/Resolving]
  - Abdominal pain upper [Not Recovered/Not Resolved]
  - Fatigue [Not Recovered/Not Resolved]
  - Hypotension [Not Recovered/Not Resolved]
  - Tinnitus [Recovering/Resolving]
  - Gastrointestinal disorder [Not Recovered/Not Resolved]
  - Injection site pain [Unknown]
  - Pyrexia [Recovering/Resolving]
  - Diarrhoea [Not Recovered/Not Resolved]
  - Vitamin A decreased [Not Recovered/Not Resolved]
  - Malaise [Not Recovered/Not Resolved]
  - Chills [Not Recovered/Not Resolved]
  - Weight decreased [Not Recovered/Not Resolved]
  - Injection site mass [Not Recovered/Not Resolved]
  - Haemorrhoids [Not Recovered/Not Resolved]
  - Irritable bowel syndrome [Not Recovered/Not Resolved]
  - Dizziness postural [Unknown]
  - Visual impairment [Not Recovered/Not Resolved]
  - Headache [Recovering/Resolving]
  - Abdominal discomfort [Not Recovered/Not Resolved]
  - Constipation [Not Recovered/Not Resolved]
  - Abdominal distension [Not Recovered/Not Resolved]
  - Sensory loss [Not Recovered/Not Resolved]
  - Injection site swelling [Unknown]
  - Pain [Not Recovered/Not Resolved]
  - Nausea [Not Recovered/Not Resolved]
  - Drug ineffective [Unknown]

NARRATIVE: CASE EVENT DATE: 20200421
